FAERS Safety Report 11289617 (Version 2)
Quarter: 2015Q3

REPORT INFORMATION
  Report Type: Spontaneous
  Country: US (occurrence: US)
  Receive Date: 20150721
  Receipt Date: 20150722
  Transmission Date: 20151125
  Serious: Yes (Other)
  Sender: FDA-Public Use
  Company Number: US-BAXTER-2015BAX037815

PATIENT
  Sex: Female

DRUGS (1)
  1. TISSEEL VH [Suspect]
     Active Substance: FIBRINOGEN HUMAN\THROMBIN HUMAN
     Indication: FACE LIFT
     Route: 061
     Dates: start: 20150624

REACTIONS (5)
  - Rash [Unknown]
  - Rash macular [Unknown]
  - Local swelling [Recovering/Resolving]
  - Ear swelling [Recovering/Resolving]
  - Eye swelling [Recovering/Resolving]
